FAERS Safety Report 11650487 (Version 1)
Quarter: 2015Q4

REPORT INFORMATION
  Report Type: Spontaneous
  Country: CN (occurrence: CN)
  Receive Date: 20151021
  Receipt Date: 20151021
  Transmission Date: 20160304
  Serious: Yes (Hospitalization)
  Sender: FDA-Public Use
  Company Number: CN-PFIZER INC-2015356810

PATIENT
  Age: 80 Year
  Sex: Female

DRUGS (5)
  1. PREDNISONE ACETATE [Suspect]
     Active Substance: PREDNISONE ACETATE
     Indication: BRONCHITIS
     Dosage: 30 MG, 1X/DAY
     Route: 048
     Dates: start: 20150405, end: 20150408
  2. SOLU-MEDROL [Suspect]
     Active Substance: METHYLPREDNISOLONE SODIUM SUCCINATE
     Indication: BRONCHITIS
     Dosage: 40 MG, 2X/DAY
     Route: 042
     Dates: start: 20150328, end: 20150405
  3. SULPERAZON [Concomitant]
     Active Substance: CEFOPERAZONE SODIUM\SULBACTAM SODIUM
     Indication: BRONCHITIS
     Dosage: 1.5 G, 2X/DAY
     Route: 042
     Dates: start: 20150327, end: 20150408
  4. THEOPHYLLINE [Concomitant]
     Active Substance: THEOPHYLLINE ANHYDROUS
     Indication: BRONCHITIS
     Dosage: 0.1 G, 2X/DAY
     Route: 048
     Dates: start: 20150327, end: 20150409
  5. SINGULAIR [Concomitant]
     Active Substance: MONTELUKAST SODIUM
     Indication: BRONCHITIS
     Dosage: 10 MG, 1X/DAY
     Route: 048
     Dates: start: 20150327, end: 20150409

REACTIONS (1)
  - White blood cell count increased [Not Recovered/Not Resolved]

NARRATIVE: CASE EVENT DATE: 20150407
